FAERS Safety Report 19862529 (Version 1)
Quarter: 2021Q3

REPORT INFORMATION
  Report Type: Spontaneous
  Country: CA (occurrence: CA)
  Receive Date: 20210921
  Receipt Date: 20210921
  Transmission Date: 20211014
  Serious: Yes (Hospitalization)
  Sender: FDA-Public Use
  Company Number: CA-BAYER-2021-211973

PATIENT
  Age: 42 Year
  Sex: Female
  Weight: 82 kg

DRUGS (7)
  1. DIPHENHYDRAMINE. [Concomitant]
     Active Substance: DIPHENHYDRAMINE
  2. IRON [Concomitant]
     Active Substance: IRON
  3. NAPROXEN SODIUM ({= 220 MG) [Suspect]
     Active Substance: NAPROXEN SODIUM
  4. ASCORBIC ACID. [Concomitant]
     Active Substance: ASCORBIC ACID
  5. FRAGMIN [Concomitant]
     Active Substance: DALTEPARIN SODIUM
  6. NIFEDIPINE XL [Concomitant]
     Active Substance: NIFEDIPINE
  7. SUMATRIPTAN. [Concomitant]
     Active Substance: SUMATRIPTAN

REACTIONS (2)
  - Fluid retention [Recovered/Resolved]
  - Pulmonary oedema [Recovered/Resolved]
